FAERS Safety Report 5220905-1 (Version None)
Quarter: 2007Q1

REPORT INFORMATION
  Report Type: 
  Country: None (occurrence: None)
  Receive Date: 20070126
  Receipt Date: 20070116
  Transmission Date: 20070707
  Serious: Yes (Death, Other)
  Sender: FDA-Public Use
  Company Number: US-PURDUE-USA_2007_0026201

PATIENT
  Sex: Female

DRUGS (2)
  1. OXYCONTIN [Suspect]
     Indication: PAIN MANAGEMENT
     Dosage: 20 MG, UNK
     Dates: start: 20021101
  2. OXYCONTIN [Suspect]
     Dosage: 80 MG, UNK
     Dates: end: 20030102

REACTIONS (3)
  - DEATH [None]
  - PAIN [None]
  - REBOUND EFFECT [None]
